FAERS Safety Report 13121927 (Version 1)
Quarter: 2017Q1

REPORT INFORMATION
  Report Type: Spontaneous
  Country: CA (occurrence: CA)
  Receive Date: 20170117
  Receipt Date: 20170117
  Transmission Date: 20170428
  Serious: Yes (Other)
  Sender: FDA-Public Use
  Company Number: CA-ELI_LILLY_AND_COMPANY-CA201701004214

PATIENT
  Age: 52 Year
  Sex: Female
  Weight: 68 kg

DRUGS (10)
  1. TYLENOL [Concomitant]
     Active Substance: ACETAMINOPHEN
  2. AMITRIPTYLINE [Suspect]
     Active Substance: AMITRIPTYLINE
     Indication: PRODUCT USED FOR UNKNOWN INDICATION
     Dosage: UNK, UNKNOWN
     Route: 065
  3. ERGOCALCIFEROL. [Concomitant]
     Active Substance: ERGOCALCIFEROL
  4. D-ALPHA TOCOPHEROL [Concomitant]
  5. LYRICA [Suspect]
     Active Substance: PREGABALIN
     Indication: PRODUCT USED FOR UNKNOWN INDICATION
     Dosage: UNK, UNKNOWN
     Route: 065
  6. PLAQUENIL                          /00072602/ [Suspect]
     Active Substance: HYDROXYCHLOROQUINE DIPHOSPHATE
     Indication: PRODUCT USED FOR UNKNOWN INDICATION
     Dosage: UNK, UNKNOWN
     Route: 065
  7. CYMBALTA [Suspect]
     Active Substance: DULOXETINE HYDROCHLORIDE
     Indication: PRODUCT USED FOR UNKNOWN INDICATION
     Dosage: UNK, UNKNOWN
     Route: 065
  8. SULFASALAZINE. [Suspect]
     Active Substance: SULFASALAZINE
     Indication: PRODUCT USED FOR UNKNOWN INDICATION
     Dosage: 500 MG, UNKNOWN
     Route: 065
  9. CLONAZEPAM. [Concomitant]
     Active Substance: CLONAZEPAM
  10. ENBREL [Suspect]
     Active Substance: ETANERCEPT
     Indication: PRODUCT USED FOR UNKNOWN INDICATION
     Dosage: 50 MG, UNKNOWN
     Route: 065

REACTIONS (27)
  - Joint swelling [Unknown]
  - Synovitis [Unknown]
  - Muscle spasms [Unknown]
  - Dactylitis [Unknown]
  - Inappropriate schedule of drug administration [Unknown]
  - Sleep apnoea syndrome [Unknown]
  - Psoriasis [Unknown]
  - Joint stiffness [Unknown]
  - Diarrhoea [Unknown]
  - Drug effect incomplete [Unknown]
  - Injury [Unknown]
  - Constipation [Unknown]
  - Nausea [Unknown]
  - Insomnia [Unknown]
  - Dizziness [Unknown]
  - Osteoarthritis [Unknown]
  - Migraine [Unknown]
  - Paraesthesia [Unknown]
  - Drug ineffective [Unknown]
  - Back pain [Unknown]
  - Drug intolerance [Unknown]
  - Inflammation [Unknown]
  - Synovial cyst [Unknown]
  - Fatigue [Unknown]
  - Finger deformity [Unknown]
  - Activities of daily living impaired [Unknown]
  - Joint effusion [Unknown]
